FAERS Safety Report 7877279-7 (Version None)
Quarter: 2011Q4

REPORT INFORMATION
  Report Type: 
  Country: None (occurrence: None)
  Receive Date: 20111031
  Receipt Date: 20111026
  Transmission Date: 20120403
  Serious: Yes (Hospitalization)
  Sender: FDA-Public Use
  Company Number: US-B.I. PHARMACEUTICALS,INC./RIDGEFIELD-2011-BP-25007BP

PATIENT
  Sex: Female

DRUGS (3)
  1. PLAVIX [Concomitant]
  2. PRADAXA [Suspect]
     Dosage: 300 MG
     Route: 048
     Dates: end: 20111001
  3. ASPIRIN [Concomitant]

REACTIONS (1)
  - HAEMATOMA [None]
